FAERS Safety Report 8550564-1 (Version None)
Quarter: 2012Q3

REPORT INFORMATION
  Report Type: 
  Country: None (occurrence: None)
  Receive Date: 20120730
  Receipt Date: 20110621
  Transmission Date: 20120928
  Serious: No
  Sender: FDA-Public Use
  Company Number: US-ALLERGAN-1108415US

PATIENT
  Age: 68 Year
  Sex: Female

DRUGS (2)
  1. LATISSE [Suspect]
  2. LATISSE [Suspect]
     Indication: GROWTH OF EYELASHES
     Dosage: 1 GTT, QHS
     Route: 061
     Dates: start: 20110607

REACTIONS (2)
  - EYELIDS PRURITUS [None]
  - WRONG TECHNIQUE IN DRUG USAGE PROCESS [None]
